FAERS Safety Report 6737975-1 (Version None)
Quarter: 2010Q2

REPORT INFORMATION
  Report Type: 
  Country: None (occurrence: None)
  Receive Date: 20100524
  Receipt Date: 20100514
  Transmission Date: 20101027
  Serious: Yes (Hospitalization)
  Sender: FDA-Public Use
  Company Number: US-PURDUE-USA-2010-0043974

PATIENT
  Sex: Female

DRUGS (2)
  1. BETADINE SURGICAL SCRUB 7.5% [Suspect]
     Indication: INFECTION
     Dosage: UNK
     Route: 061
  2. SALINE                             /00075401/ [Suspect]
     Indication: SKIN INFECTION
     Route: 061

REACTIONS (3)
  - BEDRIDDEN [None]
  - MEDICATION RESIDUE [None]
  - SKIN IRRITATION [None]
